FAERS Safety Report 4616896-4 (Version None)
Quarter: 2005Q1

REPORT INFORMATION
  Report Type: 
  Country: None (occurrence: None)
  Receive Date: 20050321
  Receipt Date: 20050311
  Transmission Date: 20050727
  Serious: Yes (Death, Hospitalization, Other)
  Sender: FDA-Public Use
  Company Number: 2005043836

PATIENT
  Age: 75 Year
  Sex: Male

DRUGS (1)
  1. FELDENE [Suspect]
     Indication: OSTEOARTHRITIS

REACTIONS (1)
  - AORTIC ANEURYSM [None]
